FAERS Safety Report 4384917-2 (Version None)
Quarter: 2004Q2

REPORT INFORMATION
  Report Type: 
  Country: None (occurrence: None)
  Receive Date: 20040623
  Receipt Date: 20040609
  Transmission Date: 20050107
  Serious: Yes (Death, Hospitalization, Other)
  Sender: FDA-Public Use
  Company Number: A-US2004-04172

PATIENT
  Age: 52 Year
  Sex: Male

DRUGS (3)
  1. TRACLEER [Suspect]
     Dosage: SEE IMAGE
     Route: 048
     Dates: start: 20020219, end: 20020410
  2. TRACLEER [Suspect]
     Dosage: SEE IMAGE
     Route: 048
     Dates: start: 20020411, end: 20031201
  3. TRACLEER [Suspect]
     Dosage: SEE IMAGE
     Route: 048
     Dates: start: 20021202

REACTIONS (2)
  - GASTROINTESTINAL CARCINOMA [None]
  - LIVER FUNCTION TEST ABNORMAL [None]
